FAERS Safety Report 5962059-X (Version None)
Quarter: 2008Q4

REPORT INFORMATION
  Report Type: 
  Country: None (occurrence: None)
  Receive Date: 20081121
  Receipt Date: 20081112
  Transmission Date: 20090506
  Serious: Yes (Other)
  Sender: FDA-Public Use
  Company Number: PHBS2008AU06361

PATIENT
  Age: 30 Year
  Sex: Female

DRUGS (4)
  1. OXPRENOLOL [Suspect]
     Indication: HYPERTENSION
  2. CALTRATE [Concomitant]
  3. IRON [Concomitant]
  4. FOLIC ACID [Concomitant]

REACTIONS (3)
  - CAESAREAN SECTION [None]
  - DRUG EXPOSURE DURING PREGNANCY [None]
  - PERITONEAL DIALYSIS [None]
